FAERS Safety Report 5733607-X (Version None)
Quarter: 2008Q2

REPORT INFORMATION
  Report Type: 
  Country: None (occurrence: None)
  Receive Date: 20080509
  Receipt Date: 20080428
  Transmission Date: 20081010
  Serious: Yes (Hospitalization)
  Sender: FDA-Public Use
  Company Number: AU-ROCHE-542630

PATIENT
  Sex: Female
  Weight: 92.3 kg

DRUGS (12)
  1. PEGASYS [Suspect]
     Dosage: COMPLETED TREATMENT.
     Route: 058
     Dates: start: 20070129, end: 20071224
  2. RIBAVIRIN [Suspect]
     Dosage: COMPLETED TREATMENT.
     Route: 048
     Dates: start: 20070129, end: 20071231
  3. ALBUTEROL [Concomitant]
     Route: 055
  4. CELECOXIB [Concomitant]
  5. LANSOPRAZOLE [Concomitant]
  6. ACETAMINOPHEN W/ CODEINE [Concomitant]
     Dates: start: 20070823
  7. ACETAMINOPHEN W/ CODEINE [Concomitant]
     Dates: start: 20070823
  8. SERTRALINE [Concomitant]
     Dates: start: 20070301
  9. NEUROFEN [Concomitant]
     Dates: start: 20070404
  10. TEMAZEPAM [Concomitant]
     Dates: start: 20070201
  11. HYDROCORTISONE CREAM [Concomitant]
  12. PHENERGAN [Concomitant]
     Dates: start: 20070322

REACTIONS (1)
  - PULMONARY GRANULOMA [None]
